FAERS Safety Report 8007674-7 (Version None)
Quarter: 2011Q4

REPORT INFORMATION
  Report Type: 
  Country: None (occurrence: None)
  Receive Date: 20111227
  Receipt Date: 20111004
  Transmission Date: 20120403
  Serious: No
  Sender: FDA-Public Use
  Company Number: US-ABBOTT-11P-163-0861580-00

PATIENT
  Sex: Male
  Weight: 71.732 kg

DRUGS (10)
  1. ALPRAZOLAM [Concomitant]
     Indication: TREMOR
  2. POMEGRANATE [Concomitant]
     Indication: SUPPLEMENTATION THERAPY
  3. CENTRUM [Concomitant]
     Indication: VITAMIN SUPPLEMENTATION
  4. IBUPROFEN [Concomitant]
     Indication: PAIN
  5. UNKNOWN MEDICATION [Concomitant]
     Indication: CONSTIPATION PROPHYLAXIS
  6. SIMETHICONE [Concomitant]
     Indication: FLATULENCE
  7. LUPRON DEPOT [Suspect]
     Indication: PROSTATE CANCER
  8. LUPRON DEPOT [Suspect]
     Dates: start: 20110101
  9. PROPRANOLOL [Concomitant]
     Indication: TREMOR
  10. FISH OIL [Concomitant]
     Indication: SUPPLEMENTATION THERAPY

REACTIONS (2)
  - HOT FLUSH [None]
  - SEXUAL DYSFUNCTION [None]
